FAERS Safety Report 10965826 (Version 2)
Quarter: 2015Q2

REPORT INFORMATION
  Report Type: Spontaneous
  Country: US (occurrence: US)
  Receive Date: 20150330
  Receipt Date: 20150403
  Transmission Date: 20150821
  Serious: Yes (Other)
  Sender: FDA-Public Use
  Company Number: US-ROCHE-1557466

PATIENT
  Age: 45 Year
  Sex: Male
  Weight: 99.43 kg

DRUGS (2)
  1. XOLAIR [Suspect]
     Active Substance: OMALIZUMAB
     Indication: ASTHMA
     Route: 058
     Dates: start: 2014, end: 20141113
  2. XOLAIR [Suspect]
     Active Substance: OMALIZUMAB
     Indication: URTICARIA

REACTIONS (11)
  - Blood pressure increased [Unknown]
  - Shoulder operation [Recovered/Resolved]
  - Arthralgia [Unknown]
  - Flatulence [Not Recovered/Not Resolved]
  - Cardiac function test abnormal [Unknown]
  - Visual impairment [Unknown]
  - Rash [Unknown]
  - Gastric disorder [Not Recovered/Not Resolved]
  - Abdominal distension [Not Recovered/Not Resolved]
  - Pharyngitis streptococcal [Recovered/Resolved]
  - Weight increased [Not Recovered/Not Resolved]

NARRATIVE: CASE EVENT DATE: 201407
